FAERS Safety Report 9631673 (Version 2)
Quarter: 2013Q4

REPORT INFORMATION
  Report Type: Spontaneous
  Country: IL (occurrence: IL)
  Receive Date: 20131018
  Receipt Date: 20131018
  Transmission Date: 20140711
  Serious: Yes (Life-Threatening, Hospitalization)
  Sender: FDA-Public Use
  Company Number: IL-009507513-1309ISR014637

PATIENT
  Age: 67 Year
  Sex: Male
  Weight: 57 kg

DRUGS (8)
  1. VICTRELIS [Suspect]
     Indication: HEPATITIS C
     Dosage: 4 X 3=12
     Route: 048
     Dates: start: 2013
  2. COPEGUS [Suspect]
     Indication: HEPATITIS C
     Dosage: TOTAL DAILY DOSE: 400 MG
     Route: 048
     Dates: start: 20130726
  3. PEGASYS [Suspect]
     Indication: HEPATITIS C
     Dosage: UNK
     Route: 048
     Dates: start: 20130726
  4. DISOTHIAZIDE [Concomitant]
     Indication: RENAL FAILURE CHRONIC
     Dosage: TOTAL DAILY DOSE: 75 MG
     Route: 048
  5. LERCANIDIPINE [Concomitant]
     Dosage: TOTAL DAILY DOSE: 10 MG
     Route: 048
  6. MICROPIRIN [Concomitant]
     Dosage: 75 MG, UNK
     Route: 048
  7. ATENOLOL [Concomitant]
     Dosage: TOTAL DAILY DOSE: 50 MG
     Route: 048
  8. ENALAPRIL MALEATE [Concomitant]
     Dosage: 10 MG, TOTAL DAILY DOSE:10 MG
     Route: 048

REACTIONS (7)
  - Full blood count decreased [Not Recovered/Not Resolved]
  - Palpitations [Not Recovered/Not Resolved]
  - Dyspnoea exertional [Not Recovered/Not Resolved]
  - Hypotension [Not Recovered/Not Resolved]
  - Tachycardia [Not Recovered/Not Resolved]
  - Asthenia [Not Recovered/Not Resolved]
  - Inappropriate schedule of drug administration [Unknown]
